FAERS Safety Report 20411198 (Version 1)
Quarter: 2022Q1

REPORT INFORMATION
  Report Type: Spontaneous
  Country: US (occurrence: None)
  Receive Date: 20220201
  Receipt Date: 20220201
  Transmission Date: 20220423
  Serious: No
  Sender: FDA-Public Use
  Company Number: None

PATIENT
  Age: 66 Year
  Sex: Female
  Weight: 107.1 kg

DRUGS (13)
  1. IBUPROFEN [Suspect]
     Active Substance: IBUPROFEN
     Indication: Arthritis
     Route: 048
     Dates: start: 20211210, end: 20220130
  2. IBUPROFEN [Suspect]
     Active Substance: IBUPROFEN
     Indication: Pain
  3. IBUPROFEN [Suspect]
     Active Substance: IBUPROFEN
     Indication: Pain in extremity
  4. LISINOPRIL [Concomitant]
     Active Substance: LISINOPRIL
  5. GLIPIZIDE [Concomitant]
     Active Substance: GLIPIZIDE
  6. METFORMIN [Concomitant]
     Active Substance: METFORMIN HYDROCHLORIDE
  7. VITAMIN D NOS [Concomitant]
     Active Substance: VITAMIN D NOS
  8. VITAMIN C [Concomitant]
     Active Substance: ASCORBIC ACID
  9. VITAMIN E [Concomitant]
     Active Substance: .ALPHA.-TOCOPHEROL
  10. OMEGA 3 [Concomitant]
     Active Substance: CAPSAICIN
  11. CLA [Concomitant]
  12. MAGNESIUM [Concomitant]
     Active Substance: MAGNESIUM
  13. VITAMIN B COMPLEX [Concomitant]
     Active Substance: CYANOCOBALAMIN\DEXPANTHENOL\NIACINAMIDE\PYRIDOXINE HYDROCHLORIDE\RIBOFLAVIN 5^-PHOSPHATE SODIUM\THIA

REACTIONS (4)
  - Poisoning [None]
  - Toxicity to various agents [None]
  - Drug ineffective [None]
  - Product quality issue [None]

NARRATIVE: CASE EVENT DATE: 20211210
